FAERS Safety Report 8289270-X (Version None)
Quarter: 2012Q2

REPORT INFORMATION
  Report Type: 
  Country: None (occurrence: None)
  Receive Date: 20120417
  Receipt Date: 20120412
  Transmission Date: 20120825
  Serious: Yes (Other)
  Sender: FDA-Public Use
  Company Number: PHHY2012CZ005868

PATIENT
  Age: 23 Year
  Sex: Male

DRUGS (6)
  1. RISPERIDONE [Suspect]
     Indication: SCHIZOPHRENIFORM DISORDER
     Dosage: 4 - 6 MG, DAILY
  2. RISPERIDONE [Suspect]
     Dosage: 4 MG, DAILY
     Route: 048
  3. ZUCLOPENTHIXOL ACETATE [Suspect]
     Dosage: 1 DF, Q48H
  4. METHOTRIMEPRAZINE [Concomitant]
     Dosage: 75-175 MG, DAILY
  5. PROMETHAZINE [Concomitant]
     Indication: SCHIZOPHRENIFORM DISORDER
     Dosage: 100-175 MG DAILY
  6. BIPERIDEN HYDROCHLORIDE TAB [Concomitant]
     Dosage: 2-4 MG DAILY

REACTIONS (10)
  - HYPOMANIA [None]
  - DYSTONIA [None]
  - HYPOCHONDRIASIS [None]
  - EXTRAPYRAMIDAL DISORDER [None]
  - PSYCHOTIC DISORDER [None]
  - DELUSION [None]
  - ANXIETY [None]
  - HYPOKINESIA [None]
  - DRUG WITHDRAWAL SYNDROME [None]
  - TREMOR [None]
